FAERS Safety Report 8507918-9 (Version None)
Quarter: 2012Q3

REPORT INFORMATION
  Report Type: 
  Country: None (occurrence: None)
  Receive Date: 20120713
  Receipt Date: 20120709
  Transmission Date: 20120928
  Serious: Yes (Hospitalization, Other)
  Sender: FDA-Public Use
  Company Number: US-BAYER-2012-042967

PATIENT
  Age: 22 Year
  Sex: Female
  Weight: 63.039 kg

DRUGS (4)
  1. YAZ [Suspect]
     Indication: ACNE
     Dosage: UNK
     Dates: start: 20070724, end: 20080102
  2. SOTRET [Concomitant]
     Dosage: 40 MG, BID
     Route: 048
     Dates: start: 20070830, end: 20090613
  3. YAZ [Suspect]
     Indication: CONTRACEPTION
  4. ACCUTANE [Concomitant]
     Indication: ACNE
     Dosage: 40 MG, BID
     Route: 048
     Dates: start: 20070201, end: 20080201

REACTIONS (9)
  - CHOLELITHIASIS [None]
  - CEREBROVASCULAR ACCIDENT [None]
  - PLEURITIC PAIN [None]
  - ABDOMINAL PAIN [None]
  - PULMONARY EMBOLISM [None]
  - PAIN [None]
  - DYSPNOEA [None]
  - INJURY [None]
  - THROMBOSIS [None]
